FAERS Safety Report 17771210 (Version 1)
Quarter: 2020Q2

REPORT INFORMATION
  Report Type: Spontaneous
  Country: US (occurrence: US)
  Receive Date: 20200512
  Receipt Date: 20200512
  Transmission Date: 20200714
  Serious: No
  Sender: FDA-Public Use
  Company Number: US-PERRIGO-20US003588

PATIENT
  Age: 50 Year
  Sex: Male
  Weight: 88.89 kg

DRUGS (3)
  1. PROPECIA [Concomitant]
     Active Substance: FINASTERIDE
     Indication: ALOPECIA
     Dosage: UNK
     Route: 065
     Dates: start: 2000
  2. PERMETHRIN. [Suspect]
     Active Substance: PERMETHRIN
     Dosage: APPROX. 30 G, SINGLE
     Route: 061
     Dates: start: 20200229, end: 20200229
  3. PERMETHRIN. [Suspect]
     Active Substance: PERMETHRIN
     Indication: ACARODERMATITIS
     Dosage: APPROX. 30 G, SINGLE
     Route: 061
     Dates: start: 20200222, end: 20200222

REACTIONS (5)
  - Dizziness [Recovering/Resolving]
  - Dyspnoea exertional [Recovering/Resolving]
  - Myalgia [Recovering/Resolving]
  - Nausea [Recovering/Resolving]
  - Hyperhidrosis [Recovered/Resolved]

NARRATIVE: CASE EVENT DATE: 20200301
